FAERS Safety Report 12994195 (Version 2)
Quarter: 2017Q1

REPORT INFORMATION
  Report Type: Spontaneous
  Country: IL (occurrence: IL)
  Receive Date: 20161202
  Receipt Date: 20170105
  Transmission Date: 20170428
  Serious: Yes (Other)
  Sender: FDA-Public Use
  Company Number: IL-TEVA-715489ACC

PATIENT
  Age: 77 Year
  Sex: Male

DRUGS (5)
  1. LUCENTIS [Concomitant]
     Active Substance: RANIBIZUMAB
     Indication: OEDEMA
     Dosage: START DATE WAS NOT SPECIFIED, FREQUENCY - EVERY THREE WEEKS-A MONTH
     Route: 031
  2. NORMITEN 50 [Suspect]
     Active Substance: ATENOLOL
     Indication: ARRHYTHMIA
     Dosage: 25 MILLIGRAM DAILY; START DATE - ABOUT 2-3 YEARS AGO, HALF TABLET IN THE MORNING
     Route: 048
  3. IKAPRESS 240 MG [Suspect]
     Active Substance: VERAPAMIL HYDROCHLORIDE
     Indication: ARRHYTHMIA
     Dosage: 120 MILLIGRAM DAILY; START DATE - ABOUT A YEAR AGO, HALF TABLET IN THE EVENING
     Route: 048
     Dates: start: 2015
  4. SINTROM [Concomitant]
     Active Substance: ACENOCOUMAROL
     Indication: ANTICOAGULANT THERAPY
     Dosage: 1 TABLET DAILY; START DATE - ABOUT 18 YEARS AGO, 1 TABLET IN THE EVENING
     Route: 048
     Dates: start: 1998
  5. LUCENTIS [Concomitant]
     Active Substance: RANIBIZUMAB
     Indication: EYE HAEMORRHAGE

REACTIONS (9)
  - Limb injury [Recovered/Resolved]
  - Wound infection [Recovered/Resolved]
  - Fall [Recovered/Resolved]
  - Haemorrhage [Recovered/Resolved]
  - Platelet count decreased [Unknown]
  - Cataract operation [Recovered/Resolved]
  - Thrombocytopenia [Unknown]
  - Malaise [Not Recovered/Not Resolved]
  - Asthenia [Not Recovered/Not Resolved]

NARRATIVE: CASE EVENT DATE: 201611
